FAERS Safety Report 17883857 (Version 1)
Quarter: 2020Q2

REPORT INFORMATION
  Report Type: Spontaneous
  Country: US (occurrence: US)
  Receive Date: 20200611
  Receipt Date: 20200611
  Transmission Date: 20200714
  Serious: No
  Sender: FDA-Public Use
  Company Number: US-BAYER-2020-111098

PATIENT
  Age: 2 Year

DRUGS (1)
  1. CLARITIN [Suspect]
     Active Substance: LORATADINE
     Dosage: 2 DF, ONCE
     Route: 048

REACTIONS (1)
  - Accidental exposure to product by child [Unknown]
